FAERS Safety Report 23221976 (Version 4)
Quarter: 2023Q4

REPORT INFORMATION
  Report Type: Spontaneous
  Country: US (occurrence: US)
  Receive Date: 20231123
  Receipt Date: 20231207
  Transmission Date: 20240109
  Serious: Yes (Death, Hospitalization, Other)
  Sender: FDA-Public Use
  Company Number: US-AMGEN-USASP2023206778

PATIENT
  Sex: Female

DRUGS (1)
  1. NPLATE [Suspect]
     Active Substance: ROMIPLOSTIM
     Indication: Immune thrombocytopenia
     Dosage: 5 MICROGRAM, QWK
     Route: 065
     Dates: start: 20160830

REACTIONS (3)
  - Death [Fatal]
  - Loss of therapeutic response [Not Recovered/Not Resolved]
  - Platelet count decreased [Unknown]
